FAERS Safety Report 7448839-2 (Version None)
Quarter: 2011Q2

REPORT INFORMATION
  Report Type: 
  Country: None (occurrence: None)
  Receive Date: 20110429
  Receipt Date: 20110422
  Transmission Date: 20111010
  Serious: Yes (Hospitalization)
  Sender: FDA-Public Use
  Company Number: FR-GENENTECH-317404

PATIENT
  Age: 48 Year
  Sex: Female

DRUGS (1)
  1. MABTHERA [Suspect]
     Indication: CHOLESTASIS
     Dosage: 375 MG/M2, UNK
     Route: 042
     Dates: start: 20100723, end: 20100730

REACTIONS (3)
  - HYPOTENSION [None]
  - URTICARIA [None]
  - HYPERTHERMIA [None]
